FAERS Safety Report 22034900 (Version 1)
Quarter: 2023Q1

REPORT INFORMATION
  Report Type: Spontaneous
  Country: US (occurrence: None)
  Receive Date: 20230224
  Receipt Date: 20230224
  Transmission Date: 20230417
  Serious: Yes (Other)
  Sender: FDA-Public Use
  Company Number: 2023A044219

PATIENT
  Age: 20707 Day
  Sex: Female
  Weight: 66.2 kg

DRUGS (13)
  1. NEXIUM [Suspect]
     Active Substance: ESOMEPRAZOLE MAGNESIUM
     Route: 048
  2. ONDANSETRON [Concomitant]
     Active Substance: ONDANSETRON
  3. POLYETHYLENE GLYCOL [Concomitant]
     Active Substance: POLYETHYLENE GLYCOL
  4. HYDROCORTISONE [Concomitant]
     Active Substance: HYDROCORTISONE
  5. MIDAZOLAM [Concomitant]
     Active Substance: MIDAZOLAM
  6. METHYLPREDNISOLONE [Concomitant]
     Active Substance: METHYLPREDNISOLONE
  7. FAMOTIDINE [Concomitant]
     Active Substance: FAMOTIDINE
  8. MEPERIDINE [Concomitant]
     Active Substance: MEPERIDINE
  9. ZOFRAN [Concomitant]
     Active Substance: ONDANSETRON HYDROCHLORIDE
  10. PROCHLORPERAZINE [Concomitant]
     Active Substance: PROCHLORPERAZINE
  11. IOHEXOL [Concomitant]
     Active Substance: IOHEXOL
  12. SUCRALFATE [Concomitant]
     Active Substance: SUCRALFATE
  13. MORPHINE [Concomitant]
     Active Substance: MORPHINE

REACTIONS (2)
  - Adenocarcinoma gastric [Unknown]
  - Adenoma benign [Unknown]

NARRATIVE: CASE EVENT DATE: 20200206
